FAERS Safety Report 8197127-8 (Version None)
Quarter: 2012Q1

REPORT INFORMATION
  Report Type: 
  Country: None (occurrence: None)
  Receive Date: 20120309
  Receipt Date: 20120301
  Transmission Date: 20120608
  Serious: Yes (Other)
  Sender: FDA-Public Use
  Company Number: JP-ASTELLAS-2012JP001809

PATIENT
  Age: 58 Year
  Sex: Male

DRUGS (9)
  1. FLUDARABINE PHOSPHATE [Concomitant]
     Route: 065
  2. METHYLPREDNISOLONE [Concomitant]
     Indication: IMMUNOSUPPRESSANT DRUG THERAPY
     Route: 065
  3. ACLARUBICIN [Concomitant]
     Route: 065
  4. NEUPOGEN [Concomitant]
     Route: 065
  5. CYTARABINE [Concomitant]
     Route: 065
  6. PROGRAF [Suspect]
     Indication: IMMUNOSUPPRESSANT DRUG THERAPY
     Route: 065
  7. MELPHALAN HYDROCHLORIDE [Concomitant]
     Route: 065
  8. ANTI-THYMOCYTE GLOBULIN NOS [Concomitant]
     Indication: IMMUNOSUPPRESSANT DRUG THERAPY
     Route: 065
  9. CYTARABINE [Concomitant]
     Route: 065

REACTIONS (2)
  - GRAFT VERSUS HOST DISEASE IN LIVER [None]
  - DRUG INEFFECTIVE [None]
